FAERS Safety Report 14322896 (Version 1)
Quarter: 2017Q4

REPORT INFORMATION
  Report Type: Spontaneous
  Country: IQ (occurrence: IQ)
  Receive Date: 20171226
  Receipt Date: 20171226
  Transmission Date: 20180321
  Serious: Yes (Other)
  Sender: FDA-Public Use
  Company Number: IQ-AMGEN-IRQSP2017190147

PATIENT
  Age: 42 Year

DRUGS (1)
  1. ENBREL [Suspect]
     Active Substance: ETANERCEPT
     Indication: PSORIASIS
     Dosage: UNK, 2X/WEEK FOR 2 MONTHS
     Route: 065

REACTIONS (3)
  - Anuria [Unknown]
  - Erythrodermic psoriasis [Unknown]
  - Oedema peripheral [Unknown]
